FAERS Safety Report 22319955 (Version 1)
Quarter: 2023Q2

REPORT INFORMATION
  Report Type: Spontaneous
  Country: IT (occurrence: None)
  Receive Date: 20230515
  Receipt Date: 20230515
  Transmission Date: 20230721
  Serious: Yes (Hospitalization, Other)
  Sender: FDA-Public Use
  Company Number: None

PATIENT
  Age: 29 Year
  Sex: Female
  Weight: 90 kg

DRUGS (2)
  1. MAVENCLAD [Suspect]
     Active Substance: CLADRIBINE
     Indication: Multiple sclerosis
     Dosage: YEAR ONE THERAPY: 1 OR 2 TABLET PER DAY FOR 5 CONSECUTIVE DAYS (AT MONTH 1 AND MONTH 2 OF 2018/19).
     Route: 048
     Dates: start: 20181213
  2. MAVENCLAD [Suspect]
     Active Substance: CLADRIBINE
     Dosage: YEAR TWO THERAPY: 1 OR 2 TABLET PER DAY FOR 5 CONSECUTIVE DAYS (AT MONTH 1 AND MONTH 2 OF 2020)
     Route: 048
     Dates: end: 20201023

REACTIONS (1)
  - Follicular thyroid cancer [Not Recovered/Not Resolved]

NARRATIVE: CASE EVENT DATE: 20220824
